FAERS Safety Report 5825506-X (Version None)
Quarter: 2008Q3

REPORT INFORMATION
  Report Type: 
  Country: None (occurrence: None)
  Receive Date: 20080724
  Receipt Date: 20080724
  Transmission Date: 20090109
  Serious: No
  Sender: FDA-Public Use
  Company Number: None

PATIENT
  Sex: Male

DRUGS (1)
  1. MIDAZOLAM HCL [Suspect]
     Indication: SEDATIVE THERAPY
     Dosage: 5-7MG ONCE IV BOLUS, NOTICED IN LAST 2
     Route: 040
     Dates: start: 20080708, end: 20080721

REACTIONS (2)
  - DRUG EFFECT DECREASED [None]
  - THERAPEUTIC RESPONSE UNEXPECTED WITH DRUG SUBSTITUTION [None]
